FAERS Safety Report 19087675 (Version 7)
Quarter: 2021Q4

REPORT INFORMATION
  Report Type: Report from Study
  Country: US (occurrence: US)
  Receive Date: 20210402
  Receipt Date: 20211217
  Transmission Date: 20220304
  Serious: Yes (Hospitalization, Other)
  Sender: FDA-Public Use
  Company Number: US-TAKEDA-2021TUS019116

PATIENT
  Age: 75 Year
  Sex: Female
  Weight: 124 kg

DRUGS (32)
  1. HUMAN IMMUNOGLOBULIN G [Suspect]
     Active Substance: HUMAN IMMUNOGLOBULIN G
     Indication: Immunodeficiency common variable
     Dosage: 16 GRAM, 1/WEEK
     Route: 058
     Dates: start: 20210308
  2. HUMAN IMMUNOGLOBULIN G [Suspect]
     Active Substance: HUMAN IMMUNOGLOBULIN G
     Indication: Immunodeficiency
  3. ACETAMINOPHEN [Concomitant]
     Active Substance: ACETAMINOPHEN
     Route: 065
  4. DIPHENHYDRAMINE [Concomitant]
     Active Substance: DIPHENHYDRAMINE
     Route: 065
  5. EPINEPHRINE [Concomitant]
     Active Substance: EPINEPHRINE
     Route: 065
  6. LMX4 [Concomitant]
     Active Substance: LIDOCAINE
     Route: 065
  7. TRULICITY [Concomitant]
     Active Substance: DULAGLUTIDE
     Route: 065
  8. TOUJEO [Concomitant]
     Active Substance: INSULIN GLARGINE
     Route: 065
  9. FLUTICASONE [Concomitant]
     Active Substance: FLUTICASONE
     Route: 065
  10. BUMETANIDE [Concomitant]
     Active Substance: BUMETANIDE
     Route: 065
  11. FARXIGA [Concomitant]
     Active Substance: DAPAGLIFLOZIN PROPANEDIOL
     Route: 065
  12. METOPROLOL [Concomitant]
     Active Substance: METOPROLOL
     Route: 065
  13. DOCUSATE [Concomitant]
     Active Substance: DOCUSATE
     Route: 065
  14. XARELTO [Concomitant]
     Active Substance: RIVAROXABAN
     Route: 065
  15. GABAPENTIN [Concomitant]
     Active Substance: GABAPENTIN
     Route: 065
  16. ZYRTEC [Concomitant]
     Active Substance: CETIRIZINE HYDROCHLORIDE
     Route: 065
  17. ATORVASTATIN [Concomitant]
     Active Substance: ATORVASTATIN
     Route: 065
  18. ASPIRIN [Concomitant]
     Active Substance: ASPIRIN
     Route: 065
  19. FISH OIL [Concomitant]
     Active Substance: FISH OIL
     Route: 065
  20. AZELASTINE HYDROCHLORIDE\FLUTICASONE PROPIONATE [Concomitant]
     Active Substance: AZELASTINE HYDROCHLORIDE\FLUTICASONE PROPIONATE
     Route: 065
  21. MAGNESIUM [Concomitant]
     Active Substance: MAGNESIUM
     Route: 065
  22. MELATONIN [Concomitant]
     Active Substance: MELATONIN
     Route: 065
  23. ISOSORBIDE [Concomitant]
     Active Substance: ISOSORBIDE
     Route: 065
  24. SPIRONOLACTONE [Concomitant]
     Active Substance: SPIRONOLACTONE
     Route: 065
  25. ACIDOPHILUS [Concomitant]
     Active Substance: LACTOBACILLUS ACIDOPHILUS
     Route: 065
  26. TIROSINT [Concomitant]
     Active Substance: LEVOTHYROXINE SODIUM
     Route: 065
  27. WIXELA INHUB [Concomitant]
     Active Substance: FLUTICASONE PROPIONATE\SALMETEROL XINAFOATE
  28. PROBIOTICS NOS [Concomitant]
     Active Substance: PROBIOTICS NOS
  29. LEVOTHYROXINE SODIUM [Concomitant]
     Active Substance: LEVOTHYROXINE SODIUM
  30. SPIRONOLACTONE [Concomitant]
     Active Substance: SPIRONOLACTONE
  31. HUMALOG [Concomitant]
     Active Substance: INSULIN LISPRO
  32. INSULIN NOS [Concomitant]
     Active Substance: INSULIN NOS

REACTIONS (8)
  - Positron emission tomogram abnormal [Unknown]
  - Nephrolithiasis [Unknown]
  - Cellulitis [Unknown]
  - Biopsy bone [Unknown]
  - Infusion site haemorrhage [Unknown]
  - Contusion [Unknown]
  - Urinary tract infection [Unknown]
  - Cough [Unknown]

NARRATIVE: CASE EVENT DATE: 20210322
